FAERS Safety Report 12339305 (Version 4)
Quarter: 2020Q4

REPORT INFORMATION
  Report Type: Spontaneous
  Country: US (occurrence: US)
  Receive Date: 20160505
  Receipt Date: 20201027
  Transmission Date: 20210113
  Serious: No
  Sender: FDA-Public Use
  Company Number: US-JAZZ-2015-US-012701

PATIENT
  Age: 62 Year
  Sex: Male
  Weight: 57.6 kg

DRUGS (12)
  1. FEXOFENADINE HCL [Concomitant]
     Active Substance: FEXOFENADINE HYDROCHLORIDE
     Indication: HYPERSENSITIVITY
     Dosage: UNK
     Dates: start: 20150824
  2. CALCIUM CARBONATE. [Concomitant]
     Active Substance: CALCIUM CARBONATE
     Indication: PRODUCT USED FOR UNKNOWN INDICATION
     Dosage: UNK
     Dates: start: 20150824
  3. MAGNESIUM [Concomitant]
     Active Substance: MAGNESIUM
     Indication: PRODUCT USED FOR UNKNOWN INDICATION
     Dosage: UNK
     Dates: start: 20150824
  4. FLUTICASONE PROPIONATE. [Concomitant]
     Active Substance: FLUTICASONE PROPIONATE
     Indication: PRODUCT USED FOR UNKNOWN INDICATION
     Dosage: UNK
  5. XYREM [Suspect]
     Active Substance: SODIUM OXYBATE
     Indication: POOR QUALITY SLEEP
     Dosage: 2.5 G, BID
     Route: 048
     Dates: start: 201109, end: 201109
  6. XYREM [Suspect]
     Active Substance: SODIUM OXYBATE
     Indication: SOMNOLENCE
     Dosage: DOSE ADJUSTMENTS
     Route: 048
  7. XYREM [Suspect]
     Active Substance: SODIUM OXYBATE
     Dosage: 2.5 G, SECOND DOSE
     Route: 048
     Dates: start: 201506
  8. ZONALON [Concomitant]
     Active Substance: DOXEPIN HYDROCHLORIDE
     Indication: PRODUCT USED FOR UNKNOWN INDICATION
  9. COMBIGAN [Concomitant]
     Active Substance: BRIMONIDINE TARTRATE\TIMOLOL MALEATE
     Indication: GLAUCOMA
     Dosage: UNK
  10. LOSARTAN POTASSIUM. [Concomitant]
     Active Substance: LOSARTAN POTASSIUM
     Indication: PRODUCT USED FOR UNKNOWN INDICATION
     Dosage: UNK
     Dates: start: 20150824
  11. XYREM [Suspect]
     Active Substance: SODIUM OXYBATE
     Dosage: 4.5 G, FIRST DOSE
     Route: 048
  12. LUMIGAN [Concomitant]
     Active Substance: BIMATOPROST
     Indication: GLAUCOMA
     Dosage: UNK

REACTIONS (18)
  - Erythema nodosum [Recovered/Resolved]
  - Pyrexia [Recovered/Resolved]
  - Blood immunoglobulin E increased [Unknown]
  - Osteopenia [Not Recovered/Not Resolved]
  - Cough [Not Recovered/Not Resolved]
  - Fatigue [Recovering/Resolving]
  - Hyperhidrosis [Recovered/Resolved]
  - Liver function test increased [Recovered/Resolved]
  - Tremor [Recovered/Resolved]
  - Rash [Recovered/Resolved]
  - Gynaecomastia [Recovered/Resolved]
  - Unevaluable event [Recovered/Resolved]
  - Erythromelalgia [Not Recovered/Not Resolved]
  - Pain [Unknown]
  - Pneumonitis [Recovering/Resolving]
  - Somnolence [Unknown]
  - Angiotensin converting enzyme increased [Unknown]
  - Lymphadenopathy [Recovered/Resolved]

NARRATIVE: CASE EVENT DATE: 2013
